FAERS Safety Report 24738397 (Version 1)
Quarter: 2024Q4

REPORT INFORMATION
  Report Type: Spontaneous
  Country: CA (occurrence: CA)
  Receive Date: 20241216
  Receipt Date: 20241216
  Transmission Date: 20250114
  Serious: Yes (Death)
  Sender: PFIZER
  Company Number: CA-PFIZER INC-PV202300047134

PATIENT
  Age: 72 Year
  Sex: Male
  Weight: 63.5 kg

DRUGS (4)
  1. LORBRENA [Suspect]
     Active Substance: LORLATINIB
     Indication: Non-small cell lung cancer
     Dosage: 90 DAYS , Q30D
     Route: 048
     Dates: start: 20220914
  2. LORBRENA [Suspect]
     Active Substance: LORLATINIB
     Dosage: 100 MG
     Route: 048
  3. LOPERAMIDE HYDROCHLORIDE [Concomitant]
     Active Substance: LOPERAMIDE HYDROCHLORIDE
     Dosage: QBM PRN
     Route: 048
  4. METOCLOPRAMIDE [Concomitant]
     Active Substance: METOCLOPRAMIDE
     Dosage: Q4-6H , 30DAYS
     Route: 048

REACTIONS (3)
  - Cerebral haemorrhage [Fatal]
  - Weight increased [Unknown]
  - Body surface area increased [Unknown]

NARRATIVE: CASE EVENT DATE: 20241208
